FAERS Safety Report 22521445 (Version 3)
Quarter: 2023Q2

REPORT INFORMATION
  Report Type: Spontaneous
  Country: US (occurrence: US)
  Receive Date: 20230605
  Receipt Date: 20230626
  Transmission Date: 20230722
  Serious: No
  Sender: FDA-Public Use
  Company Number: US-PFIZER INC-202300209106

PATIENT
  Age: 68 Year
  Sex: Female
  Weight: 45.36 kg

DRUGS (7)
  1. DEPO-ESTRADIOL [Suspect]
     Active Substance: ESTRADIOL CYPIONATE
     Indication: Hysterectomy
     Dosage: 1 MG (EVERY SIX WEEKS ADMINISTERED IN REAR END)
     Dates: start: 1992
  2. DEPO-ESTRADIOL [Suspect]
     Active Substance: ESTRADIOL CYPIONATE
     Indication: Oestrogen replacement therapy
  3. DEPO-ESTRADIOL [Suspect]
     Active Substance: ESTRADIOL CYPIONATE
     Indication: Hot flush
  4. DEPO-ESTRADIOL [Suspect]
     Active Substance: ESTRADIOL CYPIONATE
     Indication: Menopause
  5. DIAZEPAM [Concomitant]
     Active Substance: DIAZEPAM
     Indication: Sleep disorder
     Dosage: 10 MG, 2X/DAY (10MG TWO TABLETS A DAY BY MOUTH)
     Route: 048
  6. TRAMADOL [Concomitant]
     Active Substance: TRAMADOL
     Indication: Back pain
     Dosage: 10 MG, 4X/DAY (10MG SAYS CAN TAKE UP TO 4 A DAY)
  7. CALCIUM VITAMIN D3 ACIS [Concomitant]
     Dosage: UNK

REACTIONS (14)
  - Cold sweat [Not Recovered/Not Resolved]
  - Hot flush [Not Recovered/Not Resolved]
  - Migraine [Not Recovered/Not Resolved]
  - Condition aggravated [Not Recovered/Not Resolved]
  - Palpitations [Not Recovered/Not Resolved]
  - Gastric pH decreased [Unknown]
  - Blood glucose increased [Unknown]
  - Irritability [Unknown]
  - Sleep disorder [Unknown]
  - Feeling jittery [Unknown]
  - Discomfort [Unknown]
  - Product storage error [Unknown]
  - Product dose omission issue [Unknown]
  - Product supply issue [Unknown]
